FAERS Safety Report 18690179 (Version 2)
Quarter: 2021Q1

REPORT INFORMATION
  Report Type: Report from Study
  Country: IT (occurrence: IT)
  Receive Date: 20201231
  Receipt Date: 20210106
  Transmission Date: 20210419
  Serious: Yes (Hospitalization)
  Sender: FDA-Public Use
  Company Number: IT-TEVA-2020-IT-1863966

PATIENT
  Age: 81 Year
  Sex: Female

DRUGS (15)
  1. PLAVIX [Concomitant]
     Active Substance: CLOPIDOGREL BISULFATE
  2. CORDARONE [Concomitant]
     Active Substance: AMIODARONE HYDROCHLORIDE
  3. AMIODARONE [Suspect]
     Active Substance: AMIODARONE
     Indication: HYPERTENSION
     Dosage: 1DF
     Route: 048
     Dates: end: 20200908
  4. NOVOMIX 30 FLEXPEN 100 UNITS/ML SUSPENSION FOR INJECTION IN PRE?FILLED [Concomitant]
  5. CARDIOASPIRIN 100 MG COMPRESSE GASTRORESISTENTI [Concomitant]
     Active Substance: ASPIRIN
  6. CITALOPRAM [Concomitant]
     Active Substance: CITALOPRAM HYDROBROMIDE
  7. CYMBALTA [Concomitant]
     Active Substance: DULOXETINE HYDROCHLORIDE
  8. TOTALIP 20 MG COMPRESSE RIVESTITE CON FILM [Concomitant]
  9. LANTUS [Concomitant]
     Active Substance: INSULIN GLARGINE
  10. RAMIPRIL. [Interacting]
     Active Substance: RAMIPRIL
     Indication: HYPERTENSION
     Dosage: 5MG
     Route: 048
     Dates: start: 20190101, end: 20200908
  11. CORLENTOR [Concomitant]
     Active Substance: IVABRADINE HYDROCHLORIDE
  12. GLYCERYL TRINITRATE [Interacting]
     Active Substance: NITROGLYCERIN
     Indication: MYOCARDIAL ISCHAEMIA
     Dosage: 10MG
     Route: 062
     Dates: start: 20190101, end: 20200908
  13. LANSOPRAZOLE. [Concomitant]
     Active Substance: LANSOPRAZOLE
  14. TRITTICO 75 MG COMPRESSE A RILASCIO PROLUNGATO [Concomitant]
     Active Substance: TRAZODONE HYDROCHLORIDE
  15. QUETIAPINE. [Concomitant]
     Active Substance: QUETIAPINE

REACTIONS (8)
  - Renal failure [Recovering/Resolving]
  - Drug interaction [Recovering/Resolving]
  - Blood pressure increased [Recovering/Resolving]
  - Arrhythmia [Recovering/Resolving]
  - Arterial insufficiency [Recovering/Resolving]
  - Dyspnoea [Recovering/Resolving]
  - Hyperkalaemia [Recovering/Resolving]
  - Productive cough [Recovering/Resolving]

NARRATIVE: CASE EVENT DATE: 20200908
